FAERS Safety Report 19877590 (Version 2)
Quarter: 2021Q3

REPORT INFORMATION
  Report Type: Spontaneous
  Country: US (occurrence: US)
  Receive Date: 20210924
  Receipt Date: 20210930
  Transmission Date: 20211014
  Serious: Yes (Other)
  Sender: FDA-Public Use
  Company Number: US-JNJFOC-20210941347

PATIENT
  Sex: Female

DRUGS (5)
  1. CARVEDILOL. [Concomitant]
     Active Substance: CARVEDILOL
     Indication: HYPERTENSION
     Dates: start: 202108
  2. ELMIRON [Suspect]
     Active Substance: PENTOSAN POLYSULFATE SODIUM
     Indication: CYSTITIS INTERSTITIAL
     Route: 048
     Dates: start: 201409, end: 202003
  3. NADOLOL. [Concomitant]
     Active Substance: NADOLOL
     Indication: HYPERTENSION
     Dates: start: 2002, end: 202108
  4. LIPITOR [Concomitant]
     Active Substance: ATORVASTATIN CALCIUM
     Indication: BLOOD CHOLESTEROL
     Dates: start: 202101
  5. ZOCOR [Concomitant]
     Active Substance: SIMVASTATIN
     Indication: BLOOD CHOLESTEROL
     Dates: start: 2002, end: 202101

REACTIONS (2)
  - Maculopathy [Unknown]
  - Retinal pigmentation [Unknown]
